FAERS Safety Report 6405198-1 (Version None)
Quarter: 2009Q4

REPORT INFORMATION
  Report Type: 
  Country: None (occurrence: None)
  Receive Date: 20091019
  Receipt Date: 20091013
  Transmission Date: 20100525
  Serious: Yes (Hospitalization)
  Sender: FDA-Public Use
  Company Number: DE-AMGEN-UK339627

PATIENT
  Sex: Female
  Weight: 90 kg

DRUGS (4)
  1. NEUPOGEN [Suspect]
     Indication: NEUTROPENIA
     Route: 058
     Dates: start: 20071007, end: 20071028
  2. FRAGMIN [Concomitant]
     Route: 058
     Dates: start: 20071009, end: 20071015
  3. ARANESP [Concomitant]
     Route: 058
     Dates: start: 20070711, end: 20071022
  4. CIPRO [Concomitant]
     Route: 048
     Dates: start: 20071007, end: 20071014

REACTIONS (1)
  - BRONCHITIS [None]
